FAERS Safety Report 21308660 (Version 2)
Quarter: 2022Q4

REPORT INFORMATION
  Report Type: Spontaneous
  Country: US (occurrence: US)
  Receive Date: 20220908
  Receipt Date: 20221014
  Transmission Date: 20230113
  Serious: Yes (Other)
  Sender: FDA-Public Use
  Company Number: US-PFIZER INC-PV202200058974

PATIENT
  Age: 59 Year
  Sex: Male

DRUGS (2)
  1. XELJANZ XR [Suspect]
     Active Substance: TOFACITINIB CITRATE
     Indication: Rheumatoid arthritis
     Dosage: 11 MG, 1X/DAY
     Route: 048
     Dates: start: 20200101
  2. METHOTREXATE [Concomitant]
     Active Substance: METHOTREXATE
     Dosage: 7 TABLETS ONCE WEEKLY

REACTIONS (4)
  - Meniscus injury [Unknown]
  - Malaise [Unknown]
  - Sensitivity to weather change [Unknown]
  - Product dose omission issue [Unknown]
